FAERS Safety Report 9697833 (Version 2)
Quarter: 2013Q4

REPORT INFORMATION
  Report Type: Spontaneous
  Country: GB (occurrence: None)
  Receive Date: 20131118
  Receipt Date: 20131206
  Transmission Date: 20140711
  Serious: Yes (Other)
  Sender: FDA-Public Use
  Company Number: FK201304905

PATIENT
  Age: 24 Year
  Sex: Male

DRUGS (2)
  1. METHOTREXATE [Suspect]
     Indication: PSORIASIS
     Dosage: 1 IN 1 WK
     Dates: start: 2007
  2. REMICADE [Suspect]
     Indication: PSORIASIS
     Dosage: 5 MG/KG, 1 IN 8 WK, INTRAVENOUS (NOT OTHERWISE SPECIFIED)
     Route: 042
     Dates: start: 201007

REACTIONS (8)
  - Serum procollagen type III N-terminal propeptide increased [None]
  - Liver function test abnormal [None]
  - Drug ineffective [None]
  - Nausea [None]
  - Quality of life decreased [None]
  - Skin fissures [None]
  - Psoriasis [None]
  - Disease recurrence [None]
